FAERS Safety Report 4420016-9 (Version None)
Quarter: 2004Q3

REPORT INFORMATION
  Report Type: 
  Country: None (occurrence: None)
  Receive Date: 20040804
  Receipt Date: 20040722
  Transmission Date: 20050211
  Serious: No
  Sender: FDA-Public Use
  Company Number: 2004044456

PATIENT
  Sex: Male
  Weight: 96.1626 kg

DRUGS (6)
  1. NEURONTIN [Suspect]
     Indication: DIABETIC NEUROPATHY
     Dosage: 3000 MG, ORAL
     Route: 048
  2. NEURONTIN [Suspect]
     Indication: NEUROPATHY
     Dosage: 3000 MG, ORAL
     Route: 048
  3. ACETYLSALICYLIC ACID (ACETYLSALICYLIC AICD) [Concomitant]
  4. GLIPIZIDE [Concomitant]
  5. GEMFIBROZIL (GEMFIBTROZIL) [Concomitant]
  6. VALSARTAN (VALSARTAN) [Concomitant]

REACTIONS (1)
  - NO ADVERSE DRUG EFFECT [None]
